FAERS Safety Report 8900747 (Version 1)
Quarter: 2012Q4

REPORT INFORMATION
  Report Type: 
  Country: DE (occurrence: DE)
  Receive Date: 20121109
  Receipt Date: 20121109
  Transmission Date: 20130627
  Serious: Yes (Other)
  Sender: FDA-Public Use
  Company Number: DE-ASTELLAS-2012EU009716

PATIENT
  Sex: Female

DRUGS (2)
  1. PROGRAF [Suspect]
     Indication: LIVER TRANSPLANT
     Dosage: 2 mg, Unknown/D
     Route: 065
  2. DECORTIN [Concomitant]
     Indication: LIVER TRANSPLANT
     Dosage: 100 mg, Unknown/D
     Route: 065

REACTIONS (3)
  - Exposure during pregnancy [Unknown]
  - Cytomegalovirus infection [Unknown]
  - Premature rupture of membranes [Unknown]
